FAERS Safety Report 5698072-X (Version None)
Quarter: 2008Q2

REPORT INFORMATION
  Report Type: 
  Country: None (occurrence: None)
  Receive Date: 20080408
  Receipt Date: 20080326
  Transmission Date: 20081010
  Serious: Yes (Hospitalization, Other)
  Sender: FDA-Public Use
  Company Number: GB-ELI_LILLY_AND_COMPANY-GB200709000150

PATIENT
  Sex: Female
  Weight: 96 kg

DRUGS (6)
  1. BYETTA [Suspect]
     Dosage: 5 UG, UNKNOWN
     Route: 058
     Dates: start: 20070613, end: 20070701
  2. BYETTA [Suspect]
     Dosage: 10 UG, UNKNOWN
     Dates: start: 20070701
  3. LISINOPRIL [Concomitant]
     Indication: CEREBROVASCULAR ACCIDENT
     Dosage: 2.5 MG, UNKNOWN
     Route: 048
  4. ATORVASTATIN [Concomitant]
     Indication: MYOCARDIAL ISCHAEMIA
     Dosage: 20 MG, UNKNOWN
     Route: 048
  5. EZETIMIBE [Concomitant]
     Indication: DIABETES MELLITUS
     Dosage: 10 MG, UNKNOWN
     Route: 048
  6. NADOLOL [Concomitant]
     Indication: ATRIAL FIBRILLATION
     Dosage: 40 MG, UNKNOWN
     Route: 048
     Dates: start: 20061101, end: 20070726

REACTIONS (8)
  - BRADYCARDIA [None]
  - DIZZINESS [None]
  - HYPERKALAEMIA [None]
  - HYPONATRAEMIA [None]
  - PALPITATIONS [None]
  - RASH [None]
  - SINOATRIAL BLOCK [None]
  - SYNCOPE [None]
